FAERS Safety Report 5116009-9 (Version None)
Quarter: 2006Q3

REPORT INFORMATION
  Report Type: 
  Country: None (occurrence: None)
  Receive Date: 20060927
  Receipt Date: 20060209
  Transmission Date: 20061208
  Serious: No
  Sender: FDA-Public Use
  Company Number: US-BRISTOL-MYERS SQUIBB COMPANY-13279104

PATIENT
  Age: 49 Year
  Sex: Female

DRUGS (1)
  1. DEFINITY [Suspect]
     Indication: CARDIOVASCULAR EVALUATION
     Dosage: TOTAL DOSE WAS 1 CC INTRAVENOUS DILUTED BOLUS INJECTION OF 1.5 ML PERFLUTREN AND 8.5 ML SALINE.
     Route: 040
     Dates: start: 20060201, end: 20060201

REACTIONS (2)
  - ERYTHEMA [None]
  - RASH [None]
